FAERS Safety Report 22967404 (Version 2)
Quarter: 2023Q4

REPORT INFORMATION
  Report Type: Spontaneous
  Country: US (occurrence: US)
  Receive Date: 20230921
  Receipt Date: 20231115
  Transmission Date: 20240110
  Serious: No
  Sender: FDA-Public Use
  Company Number: US-PFIZER INC-PV202300155943

PATIENT
  Age: 71 Year
  Sex: Female

DRUGS (6)
  1. IBRANCE [Suspect]
     Active Substance: PALBOCICLIB
     Dosage: 125 MG
     Route: 048
     Dates: start: 20220131
  2. GOLDEN REVIVE + [Concomitant]
  3. FASLODEX [Concomitant]
     Active Substance: FULVESTRANT
  4. MAGNESIUM [Concomitant]
     Active Substance: MAGNESIUM
  5. NAPROXEN [Concomitant]
     Active Substance: NAPROXEN
  6. VITAMIN D NOS [Concomitant]
     Active Substance: VITAMIN D NOS

REACTIONS (1)
  - Psoriasis [Unknown]
